FAERS Safety Report 12271605 (Version 1)
Quarter: 2016Q2

REPORT INFORMATION
  Report Type: Spontaneous
  Country: US (occurrence: None)
  Receive Date: 20160414
  Receipt Date: 20160414
  Transmission Date: 20160815
  Serious: Yes (Other)
  Sender: FDA-Public Use
  Company Number: None

PATIENT
  Age: 46 Year
  Sex: Female
  Weight: 90.27 kg

DRUGS (1)
  1. OXYCODONE ER 40MG [Suspect]
     Active Substance: OXYCODONE
     Indication: PAIN
     Route: 048
     Dates: start: 20160407

REACTIONS (6)
  - Dry mouth [None]
  - Hyperhidrosis [None]
  - Constipation [None]
  - Product substitution issue [None]
  - Hyperchlorhydria [None]
  - Headache [None]

NARRATIVE: CASE EVENT DATE: 20160407
